FAERS Safety Report 14159879 (Version 1)
Quarter: 2017Q4

REPORT INFORMATION
  Report Type: Spontaneous
  Country: US (occurrence: US)
  Receive Date: 20171103
  Receipt Date: 20171103
  Transmission Date: 20180321
  Serious: No
  Sender: FDA-Public Use
  Company Number: US-AMGEN-USASP2017113621

PATIENT
  Age: 89 Year
  Sex: Female
  Weight: 63.49 kg

DRUGS (10)
  1. PROCRIT [Suspect]
     Active Substance: ERYTHROPOIETIN
     Indication: ANAEMIA
     Dosage: 10000 UNIT, AS NECESSARY (AS NEEDED)
     Route: 058
     Dates: start: 2016, end: 2017
  2. NEURONTIN [Concomitant]
     Active Substance: GABAPENTIN
     Dosage: 100 MUG, BID
  3. XANAX [Concomitant]
     Active Substance: ALPRAZOLAM
     Dosage: UNK UNK, AS NECESSARY (AS NEEDED)
  4. LEVOTHYROXINE. [Concomitant]
     Active Substance: LEVOTHYROXINE
     Dosage: 150 MUG, QD
  5. PROCRIT [Suspect]
     Active Substance: ERYTHROPOIETIN
     Dosage: 10000 UNIT, AS NECESSARY (AS NEEDED)
     Route: 058
     Dates: start: 201707
  6. LIPITOR [Concomitant]
     Active Substance: ATORVASTATIN CALCIUM
     Dosage: 20 MG, QD
  7. HYDRALAZINE [Concomitant]
     Active Substance: HYDRALAZINE HYDROCHLORIDE
     Indication: HYPERSENSITIVITY
     Dosage: 50 MG, TID
  8. AMIODARONE [Concomitant]
     Active Substance: AMIODARONE
     Dosage: 100 MG, QD
  9. PRILOSEC [Concomitant]
     Active Substance: OMEPRAZOLE MAGNESIUM
     Dosage: 20 MG, QD
  10. LASIX [Concomitant]
     Active Substance: FUROSEMIDE
     Dosage: 20 MG, QD

REACTIONS (1)
  - Haemoglobin abnormal [Not Recovered/Not Resolved]

NARRATIVE: CASE EVENT DATE: 2016
